FAERS Safety Report 4518240-X (Version None)
Quarter: 2004Q4

REPORT INFORMATION
  Report Type: 
  Country: None (occurrence: None)
  Receive Date: 20041130
  Receipt Date: 20041111
  Transmission Date: 20050328
  Serious: Yes (Hospitalization, Other)
  Sender: FDA-Public Use
  Company Number: USA040259191

PATIENT
  Sex: Female

DRUGS (5)
  1. EVISTA [Suspect]
     Indication: OSTEOPOROSIS
     Dosage: 60 MG/1 DAY
     Dates: start: 20030101
  2. CALCIUM [Concomitant]
  3. ONE-A-DAY 55 PLUS [Concomitant]
  4. VITAMIN D [Concomitant]
  5. VITAMIN K [Concomitant]

REACTIONS (14)
  - CARDIAC FAILURE CONGESTIVE [None]
  - DISLOCATION OF VERTEBRA [None]
  - DYSPHAGIA [None]
  - HAEMATEMESIS [None]
  - HUMERUS FRACTURE [None]
  - JAW DISORDER [None]
  - LUNG DISORDER [None]
  - PNEUMONIA [None]
  - PULMONARY HAEMORRHAGE [None]
  - SPINAL FRACTURE [None]
  - TOOTH FRACTURE [None]
  - TOOTH LOSS [None]
  - ULCER [None]
  - UPPER LIMB FRACTURE [None]
